FAERS Safety Report 15229228 (Version 2)
Quarter: 2018Q3

REPORT INFORMATION
  Report Type: Spontaneous
  Country: US (occurrence: US)
  Receive Date: 20180801
  Receipt Date: 20180820
  Transmission Date: 20181010
  Serious: Yes (Hospitalization)
  Sender: FDA-Public Use
  Company Number: US-VIFOR (INTERNATIONAL) INC.-VIT-2016-06152

PATIENT
  Age: 70 Year
  Sex: Female
  Weight: 118.04 kg

DRUGS (14)
  1. PARACETAMOL/OXYCODONE HYDROCHLORIDE [Concomitant]
  2. ERGOCALCIFEROL. [Concomitant]
     Active Substance: ERGOCALCIFEROL
  3. NOVOLIN [Concomitant]
     Active Substance: INSULIN HUMAN
  4. HUMALOG [Concomitant]
     Active Substance: INSULIN LISPRO
  5. DILTIAZEM HYDROCHLORIDE. [Concomitant]
     Active Substance: DILTIAZEM HYDROCHLORIDE
  6. DULOXETINE. [Concomitant]
     Active Substance: DULOXETINE
  7. HUMULIN NOS [Concomitant]
     Active Substance: INSULIN HUMAN
  8. LOSARTAN. [Concomitant]
     Active Substance: LOSARTAN
  9. TAMSULOSIN [Concomitant]
     Active Substance: TAMSULOSIN
  10. MECLIZINE [Concomitant]
     Active Substance: MECLIZINE HYDROCHLORIDE
  11. VELTASSA [Suspect]
     Active Substance: PATIROMER
     Indication: HYPERKALAEMIA
     Route: 048
     Dates: start: 201603
  12. MAGNESIUM OXIDE. [Concomitant]
     Active Substance: MAGNESIUM OXIDE
  13. FOLIC ACID. [Concomitant]
     Active Substance: FOLIC ACID
  14. VELTASSA [Suspect]
     Active Substance: PATIROMER
     Route: 048
     Dates: start: 20160803

REACTIONS (5)
  - Ill-defined disorder [Not Recovered/Not Resolved]
  - Dizziness [Not Recovered/Not Resolved]
  - Drug dose omission [Not Recovered/Not Resolved]
  - Asthenia [Not Recovered/Not Resolved]
  - Paraesthesia [Not Recovered/Not Resolved]

NARRATIVE: CASE EVENT DATE: 2016
